FAERS Safety Report 9165904 (Version 1)
Quarter: 2013Q1

REPORT INFORMATION
  Report Type: Spontaneous
  Country: US (occurrence: None)
  Receive Date: 20130314
  Receipt Date: 20130314
  Transmission Date: 20140127
  Serious: No
  Sender: FDA-Public Use
  Company Number: None

PATIENT
  Sex: Female
  Weight: 81.65 kg

DRUGS (1)
  1. AMOXICILLIN [Suspect]
     Indication: TOOTH INFECTION
     Dosage: 500 TWICE DAY  ORAL
     Route: 048

REACTIONS (1)
  - Tooth disorder [None]
